FAERS Safety Report 7054284-4 (Version None)
Quarter: 2010Q4

REPORT INFORMATION
  Report Type: 
  Country: None (occurrence: None)
  Receive Date: 20101015
  Receipt Date: 20101001
  Transmission Date: 20110411
  Serious: Yes (Hospitalization)
  Sender: FDA-Public Use
  Company Number: 20090564

PATIENT
  Age: 71 Year
  Sex: Female

DRUGS (2)
  1. VENOFER [Suspect]
     Indication: ANAEMIA
     Dosage: 300 MG OVER 2 HOURS INTRAVENOUS
     Route: 042
     Dates: start: 20091104, end: 20091104
  2. CHEMOTHERAPY [Concomitant]

REACTIONS (9)
  - ASTHENIA [None]
  - BRADYCARDIA [None]
  - CYANOSIS [None]
  - HYPERHIDROSIS [None]
  - JOINT SWELLING [None]
  - MALAISE [None]
  - OEDEMA PERIPHERAL [None]
  - SWEAT DISCOLOURATION [None]
  - VERTIGO [None]
